FAERS Safety Report 11254043 (Version 1)
Quarter: 2015Q3

REPORT INFORMATION
  Report Type: Spontaneous
  Country: US (occurrence: US)
  Receive Date: 20150709
  Receipt Date: 20150709
  Transmission Date: 20151125
  Serious: No
  Sender: FDA-Public Use
  Company Number: US-BAYER-2015-369493

PATIENT
  Age: 80 Year
  Sex: Female
  Weight: 70 kg

DRUGS (10)
  1. ASPIRIN [ACETYLSALICYLIC ACID] [Concomitant]
  2. PRILOSEC [Concomitant]
     Active Substance: OMEPRAZOLE MAGNESIUM
  3. ENEMA [PHOSPHORIC ACID SODIUM] [Concomitant]
     Dosage: UNK
  4. LORTAB [Concomitant]
     Active Substance: ACETAMINOPHEN\HYDROCODONE BITARTRATE
  5. MIRALAX [Suspect]
     Active Substance: POLYETHYLENE GLYCOL 3350
     Indication: BOWEL MOVEMENT IRREGULARITY
     Dosage: 1.5 DOSE, QD
     Route: 048
     Dates: start: 201503
  6. ZYRTEC [Concomitant]
     Active Substance: CETIRIZINE HYDROCHLORIDE
  7. FLONASE [Concomitant]
     Active Substance: FLUTICASONE PROPIONATE
  8. MIRALAX [Suspect]
     Active Substance: POLYETHYLENE GLYCOL 3350
     Indication: BOWEL MOVEMENT IRREGULARITY
     Dosage: UNK, QD
     Route: 048
     Dates: start: 2013, end: 201503
  9. DIOVAN AMLO [Concomitant]
     Active Substance: AMLODIPINE\VALSARTAN
  10. NITROSTAT [Concomitant]
     Active Substance: NITROGLYCERIN

REACTIONS (4)
  - Drug ineffective [Unknown]
  - Product use issue [Unknown]
  - Product use issue [Unknown]
  - Chromaturia [Not Recovered/Not Resolved]

NARRATIVE: CASE EVENT DATE: 2013
